FAERS Safety Report 21632801 (Version 1)
Quarter: 2022Q4

REPORT INFORMATION
  Report Type: Report from Study
  Country: US (occurrence: US)
  Receive Date: 20221123
  Receipt Date: 20221123
  Transmission Date: 20230113
  Serious: No
  Sender: FDA-Public Use
  Company Number: US-ABBVIE-4178294

PATIENT
  Sex: Male

DRUGS (2)
  1. HUMIRA [Suspect]
     Active Substance: ADALIMUMAB
     Indication: Crohn^s disease
     Dosage: DAY 1?LOADING DOSE
     Route: 058
     Dates: start: 20211025, end: 20211025
  2. HUMIRA [Suspect]
     Active Substance: ADALIMUMAB
     Dosage: DAY 15?LOADING DOSE
     Route: 058
     Dates: start: 20211108, end: 20211108

REACTIONS (7)
  - Loss of personal independence in daily activities [Unknown]
  - Asthenia [Unknown]
  - Depressed mood [Unknown]
  - Paronychia [Not Recovered/Not Resolved]
  - Arthralgia [Unknown]
  - Back disorder [Unknown]
  - Gastrointestinal sounds abnormal [Unknown]

NARRATIVE: CASE EVENT DATE: 20220101
